FAERS Safety Report 19718330 (Version 2)
Quarter: 2021Q3

REPORT INFORMATION
  Report Type: Spontaneous
  Country: US (occurrence: US)
  Receive Date: 20210819
  Receipt Date: 20210907
  Transmission Date: 20211014
  Serious: No
  Sender: FDA-Public Use
  Company Number: US-LEO PHARMA-337932

PATIENT
  Age: 69 Year
  Sex: Male

DRUGS (1)
  1. ENSTILAR [Suspect]
     Active Substance: BETAMETHASONE DIPROPIONATE\CALCIPOTRIENE HYDRATE
     Indication: PSORIASIS
     Dosage: BEEN TAKING ENSTILAR ON AND OFF OVER THE YEARS

REACTIONS (2)
  - Inappropriate schedule of product administration [Unknown]
  - Epistaxis [Recovered/Resolved]
